FAERS Safety Report 4394499-7 (Version None)
Quarter: 2004Q3

REPORT INFORMATION
  Report Type: 
  Country: None (occurrence: None)
  Receive Date: 20040706
  Receipt Date: 20040623
  Transmission Date: 20050211
  Serious: Yes (Other)
  Sender: FDA-Public Use
  Company Number: 2004041566

PATIENT
  Age: 71 Year
  Sex: Female
  Weight: 58.9676 kg

DRUGS (5)
  1. NEURONTIN [Suspect]
     Indication: BACK PAIN
     Dosage: 1600 MG (800 MG, 2 IN 1 D), ORAL
     Route: 048
     Dates: start: 20020101
  2. LIPITOR [Suspect]
     Indication: BLOOD CHOLESTEROL INCREASED
     Dosage: 10 MG (10 MG, 1 IN 1 D), ORAL
     Route: 048
     Dates: start: 20040401, end: 20040621
  3. METOPROLOL (METOPROLOL) [Concomitant]
  4. ESOMEPRAZOLE (ESOMEPRAZOLE) [Concomitant]
  5. TOCOPHEROL (TOCOPHEROM) [Concomitant]

REACTIONS (7)
  - BACK PAIN [None]
  - BLOOD CHOLESTEROL INCREASED [None]
  - CONDITION AGGRAVATED [None]
  - DRUG INEFFECTIVE [None]
  - FEELING ABNORMAL [None]
  - MUSCLE DISORDER [None]
  - PHARMACEUTICAL PRODUCT COMPLAINT [None]
